FAERS Safety Report 24004660 (Version 1)
Quarter: 2024Q2

REPORT INFORMATION
  Report Type: Spontaneous
  Country: US (occurrence: US)
  Receive Date: 20240624
  Receipt Date: 20240624
  Transmission Date: 20240715
  Serious: No
  Sender: FDA-Public Use
  Company Number: US-PFIZER INC-202400194197

PATIENT
  Age: 16 Year
  Sex: Male
  Weight: 97.52 kg

DRUGS (2)
  1. GENOTROPIN [Suspect]
     Active Substance: SOMATROPIN
     Indication: Delayed puberty
     Dosage: 3.4 MG SIX DAYS PER WEEK
     Dates: start: 202402
  2. GENOTROPIN [Suspect]
     Active Substance: SOMATROPIN
     Dosage: 4 MG INJECTION SIX DAYS A WEEK
     Dates: start: 202402

REACTIONS (3)
  - Product storage error [Unknown]
  - Device information output issue [Unknown]
  - Drug dose omission by device [Unknown]

NARRATIVE: CASE EVENT DATE: 20240601
